FAERS Safety Report 4604148-8 (Version None)
Quarter: 2005Q1

REPORT INFORMATION
  Report Type: 
  Country: None (occurrence: None)
  Receive Date: 20050308
  Receipt Date: 20050308
  Transmission Date: 20050727
  Serious: Yes (Hospitalization)
  Sender: FDA-Public Use
  Company Number: None

PATIENT
  Age: 51 Year
  Sex: Male
  Weight: 72.9 kg

DRUGS (7)
  1. FOSINOPRIL 40MG [Suspect]
     Indication: HYPERTENSION
     Dosage: 40MG  PO QD
     Route: 048
  2. NPH INSULIN [Concomitant]
  3. REGULAR INSULIN [Concomitant]
  4. METFORMIN HCL [Concomitant]
  5. OLANZAPINE [Concomitant]
  6. TRAZODONE HCL [Concomitant]
  7. DIPHENHYDRAMINE HCL [Concomitant]

REACTIONS (2)
  - ELECTROCARDIOGRAM P WAVE ABNORMAL [None]
  - HYPERKALAEMIA [None]
